FAERS Safety Report 7736318-4 (Version None)
Quarter: 2011Q3

REPORT INFORMATION
  Report Type: 
  Country: None (occurrence: None)
  Receive Date: 20110908
  Receipt Date: 20110829
  Transmission Date: 20111222
  Serious: Yes (Hospitalization)
  Sender: FDA-Public Use
  Company Number: US-BAYER-201038838NA

PATIENT
  Age: 19 Year
  Sex: Female
  Weight: 54.422 kg

DRUGS (16)
  1. IMIPRAMINE [Concomitant]
     Dosage: UNK
     Dates: start: 20041201
  2. KEFLEX [Concomitant]
  3. DITROPAN [Concomitant]
     Dosage: UNK
     Dates: start: 20041101
  4. OXYCODONE HCL AND ACETAMINOPHEN [Concomitant]
     Dosage: UNK
     Dates: start: 20050301
  5. DEXAMETHASONE [Concomitant]
     Dosage: UNK
     Dates: start: 20050301
  6. MEPROZINE [Concomitant]
     Dosage: UNK
     Dates: start: 20050301
  7. PENICILLIN [Concomitant]
     Dosage: UNK
     Dates: start: 19990101
  8. DEMEROL [Concomitant]
  9. CEPHALEXIN [Concomitant]
     Dosage: UNK
     Dates: start: 20050301
  10. MOTRIN [Concomitant]
     Dosage: UNK
     Dates: start: 20040101
  11. YASMIN [Suspect]
     Indication: ORAL CONTRACEPTION
     Dosage: UNK UNK, QD
     Route: 048
     Dates: start: 20041201, end: 20050301
  12. AMOXICILLIN [Concomitant]
     Dosage: UNK
     Dates: start: 19990101
  13. MACROBID [Concomitant]
     Dosage: UNK
     Dates: start: 20041201
  14. OXYCONTIN [Concomitant]
  15. SOLIA [Concomitant]
     Dosage: UNK
     Dates: start: 20041101
  16. DIAZEPAM [Concomitant]
     Dosage: UNK
     Dates: start: 20050301

REACTIONS (2)
  - PULMONARY EMBOLISM [None]
  - DEPRESSION [None]
